FAERS Safety Report 9267901 (Version 2)
Quarter: 2014Q1

REPORT INFORMATION
  Report Type: Report from Study
  Country: US (occurrence: US)
  Receive Date: 20130502
  Receipt Date: 20140115
  Transmission Date: 20141002
  Serious: Yes (Hospitalization)
  Sender: FDA-Public Use
  Company Number: US-ALEXION-A201201175

PATIENT
  Sex: 0

DRUGS (10)
  1. SOLIRIS [Suspect]
     Indication: HAEMOLYTIC URAEMIC SYNDROME
     Dosage: 900 MG, QW
     Dates: start: 20120519
  2. SOLIRIS [Suspect]
     Dosage: 1200 UNK, UNK
     Dates: start: 20120615
  3. SOLIRIS [Suspect]
     Dosage: UNK
  4. FAMOTIDINE [Concomitant]
     Indication: PROPHYLAXIS AGAINST GASTROINTESTINAL ULCER
     Dosage: 20 MG, BID
     Route: 048
  5. FOLIC ACID [Concomitant]
     Dosage: 1 MG, BID
     Route: 048
  6. PREDNISONE [Concomitant]
     Dosage: 20 MG, QD
     Route: 048
  7. HYDRALAZINE [Concomitant]
     Dosage: 50 MG, TID
     Route: 048
  8. HYDROCODONE [Concomitant]
     Dosage: 5/500 MG, 1-2, Q 6 HRS
     Route: 048
  9. LASIX [Concomitant]
     Dosage: 20
     Route: 048
  10. LASIX [Concomitant]
     Dosage: 80 MG, TID
     Route: 048
     Dates: start: 20120615

REACTIONS (8)
  - Fluid overload [Not Recovered/Not Resolved]
  - Gastroenteritis viral [Recovered/Resolved]
  - Urine output decreased [Not Recovered/Not Resolved]
  - Nausea [Recovered/Resolved]
  - Vomiting [Recovered/Resolved]
  - Diarrhoea [Recovered/Resolved]
  - Oedema peripheral [Unknown]
  - Asthenia [Unknown]
